FAERS Safety Report 5626055-4 (Version None)
Quarter: 2008Q1

REPORT INFORMATION
  Report Type: 
  Country: None (occurrence: None)
  Receive Date: 20080214
  Receipt Date: 20080206
  Transmission Date: 20080703
  Serious: Yes (Other)
  Sender: FDA-Public Use
  Company Number: PHEH2008US01590

PATIENT
  Sex: Female

DRUGS (1)
  1. RECLAST [Suspect]
     Indication: OSTEITIS DEFORMANS
     Dosage: 5 MG, ONCE/SINGLE

REACTIONS (4)
  - HYPOAESTHESIA [None]
  - HYPOAESTHESIA FACIAL [None]
  - HYPOCALCAEMIA [None]
  - PARAESTHESIA [None]
